FAERS Safety Report 20428316 (Version 6)
Quarter: 2022Q3

REPORT INFORMATION
  Report Type: Report from Study
  Country: US (occurrence: US)
  Receive Date: 20220204
  Receipt Date: 20220708
  Transmission Date: 20221027
  Serious: Yes (Hospitalization, Other)
  Sender: FDA-Public Use
  Company Number: US-INSMED, INC.-2021-10338-US

PATIENT
  Sex: Male

DRUGS (4)
  1. ARIKAYCE [Suspect]
     Active Substance: AMIKACIN
     Indication: Mycobacterium avium complex infection
     Dosage: 590 MILLIGRAM, QD
     Route: 055
     Dates: start: 20211119, end: 202112
  2. ARIKAYCE [Suspect]
     Active Substance: AMIKACIN
     Dosage: 590 MILLIGRAM
     Route: 055
     Dates: start: 202112, end: 202201
  3. ARIKAYCE [Suspect]
     Active Substance: AMIKACIN
     Dosage: 590 MILLIGRAM, QD
     Route: 055
     Dates: start: 2022, end: 2022
  4. ARIKAYCE [Suspect]
     Active Substance: AMIKACIN
     Dosage: AS HE IS ABLE TO
     Route: 055
     Dates: start: 2022

REACTIONS (22)
  - Lung disorder [Unknown]
  - COVID-19 [Recovered/Resolved]
  - Pneumothorax [Recovered/Resolved]
  - Constipation [Unknown]
  - Chest pain [Unknown]
  - Drug intolerance [Unknown]
  - Abdominal pain upper [Unknown]
  - Pain [Unknown]
  - Productive cough [Unknown]
  - Chest discomfort [Unknown]
  - Headache [Unknown]
  - Feeling abnormal [Unknown]
  - Wheezing [Unknown]
  - Cough [Unknown]
  - Nausea [Unknown]
  - Diarrhoea [Unknown]
  - Adverse drug reaction [Unknown]
  - Malaise [Unknown]
  - Dysphonia [Unknown]
  - Dyspnoea [Unknown]
  - Therapy interrupted [Unknown]
  - Intentional dose omission [Unknown]

NARRATIVE: CASE EVENT DATE: 20210101
